FAERS Safety Report 7940375-X (Version None)
Quarter: 2011Q4

REPORT INFORMATION
  Report Type: 
  Country: None (occurrence: None)
  Receive Date: 20111127
  Receipt Date: 20110913
  Transmission Date: 20120403
  Serious: No
  Sender: FDA-Public Use
  Company Number: US-ALLERGAN-1112162US

PATIENT
  Age: 63 Year
  Sex: Female

DRUGS (2)
  1. EPINASTINE HYDROCHLORIDE [Suspect]
     Indication: HYPERSENSITIVITY
     Dosage: UNK
     Route: 047
  2. ELESTAT [Suspect]
     Indication: HYPERSENSITIVITY
     Dosage: UNK
     Route: 047

REACTIONS (1)
  - DRUG INEFFECTIVE [None]
